FAERS Safety Report 25887041 (Version 1)
Quarter: 2025Q4

REPORT INFORMATION
  Report Type: Spontaneous
  Country: JP (occurrence: JP)
  Receive Date: 20251006
  Receipt Date: 20251006
  Transmission Date: 20260118
  Serious: Yes (Hospitalization)
  Sender: UCB
  Company Number: JP-UCBJ-CD202513012UCBPHAPROD

PATIENT
  Age: 9 Decade
  Sex: Male

DRUGS (1)
  1. ZILBRYSQ [Suspect]
     Active Substance: ZILUCOPLAN
     Indication: Myasthenia gravis
     Dosage: UNK, ONCE DAILY
     Route: 058
     Dates: start: 20250817, end: 20250929

REACTIONS (1)
  - Oesophagectomy [Unknown]

NARRATIVE: CASE EVENT DATE: 20250920
